FAERS Safety Report 4752462-8 (Version None)
Quarter: 2005Q3

REPORT INFORMATION
  Report Type: 
  Country: None (occurrence: None)
  Receive Date: 20050823
  Receipt Date: 20050808
  Transmission Date: 20060218
  Serious: Yes (Hospitalization)
  Sender: FDA-Public Use
  Company Number: GBS050818135

PATIENT
  Age: 65 Year
  Sex: Female

DRUGS (1)
  1. GEMZAR [Suspect]
     Indication: BREAST CANCER

REACTIONS (4)
  - CAPILLARY LEAK SYNDROME [None]
  - COLITIS [None]
  - HAEMOLYTIC URAEMIC SYNDROME [None]
  - NEPHROTIC SYNDROME [None]
